FAERS Safety Report 8029840-7 (Version None)
Quarter: 2012Q1

REPORT INFORMATION
  Report Type: 
  Country: None (occurrence: None)
  Receive Date: 20120109
  Receipt Date: 20111230
  Transmission Date: 20120608
  Serious: Yes (Other)
  Sender: FDA-Public Use
  Company Number: GB-TEVA-285135ISR

PATIENT
  Age: 21 Year
  Sex: Female

DRUGS (3)
  1. ESCITALOPRAM [Suspect]
     Indication: ANXIETY
     Dosage: 20 MILLIGRAM;
     Route: 048
     Dates: start: 20101101
  2. RISPERIDONE [Suspect]
     Indication: DISTURBANCE IN SOCIAL BEHAVIOUR
     Dates: start: 20100708, end: 20100929
  3. RISPERIDONE [Suspect]
     Dosage: 0.25-1.5MG
     Dates: start: 20100415

REACTIONS (1)
  - OCULOGYRIC CRISIS [None]
